FAERS Safety Report 8021864-9 (Version None)
Quarter: 2011Q4

REPORT INFORMATION
  Report Type: 
  Country: None (occurrence: None)
  Receive Date: 20111230
  Receipt Date: 20111213
  Transmission Date: 20120403
  Serious: Yes (Hospitalization, Other)
  Sender: FDA-Public Use
  Company Number: 2011AP003034

PATIENT
  Age: 87 Year
  Sex: Female

DRUGS (9)
  1. CANDESARTAN CILEXETIL [Concomitant]
  2. LEVOTHYROXINE SODIUM [Concomitant]
  3. FUROSEMIDE [Concomitant]
  4. ASPIRIN [Concomitant]
  5. LANSOPRAZOLE [Concomitant]
  6. ACETAMINOPHEN [Concomitant]
  7. PROCHLORPERAZINE MALEATE [Concomitant]
  8. QUININE BISULFATE (QUININE BISULFATE) [Concomitant]
  9. CITALOPRAM HYDROBROMIDE [Suspect]
     Indication: DEPRESSION
     Dosage: 10 MG; PO; QD
     Route: 048
     Dates: start: 20111014, end: 20111111

REACTIONS (25)
  - ANXIETY [None]
  - CONSTIPATION [None]
  - ARTHRALGIA [None]
  - LISTLESS [None]
  - MALAISE [None]
  - MYALGIA [None]
  - SEROTONIN SYNDROME [None]
  - THIRST [None]
  - MICTURITION URGENCY [None]
  - ABDOMINAL PAIN [None]
  - BLOOD SODIUM DECREASED [None]
  - FLATULENCE [None]
  - DYSKINESIA [None]
  - NERVOUSNESS [None]
  - DYSURIA [None]
  - AMNESIA [None]
  - INSOMNIA [None]
  - AGITATION [None]
  - TREMOR [None]
  - BLEEDING TIME PROLONGED [None]
  - DISTURBANCE IN ATTENTION [None]
  - ABDOMINAL PAIN UPPER [None]
  - MOVEMENT DISORDER [None]
  - PANIC ATTACK [None]
  - RHINORRHOEA [None]
